FAERS Safety Report 9255470 (Version 1)
Quarter: 2013Q2

REPORT INFORMATION
  Report Type: Spontaneous
  Country: BR (occurrence: None)
  Receive Date: 20130418
  Receipt Date: 20130418
  Transmission Date: 20140414
  Serious: Yes (Death)
  Sender: FDA-Public Use
  Company Number: 2013-001140

PATIENT
  Sex: Female

DRUGS (1)
  1. ACTONEL (RISEDRONATE SODIUM) TABLET, 35MG [Suspect]
     Route: 048

REACTIONS (1)
  - Death [None]
